FAERS Safety Report 22062636 (Version 4)
Quarter: 2023Q2

REPORT INFORMATION
  Report Type: Spontaneous
  Country: US (occurrence: US)
  Receive Date: 20230306
  Receipt Date: 20230518
  Transmission Date: 20230721
  Serious: No
  Sender: FDA-Public Use
  Company Number: US-BEH-2023155780

PATIENT
  Sex: Female

DRUGS (24)
  1. HIZENTRA [Suspect]
     Active Substance: HUMAN IMMUNOGLOBULIN G
     Indication: Selective IgG subclass deficiency
     Dosage: 6 GRAM, QW
     Route: 058
  2. HIZENTRA [Suspect]
     Active Substance: HUMAN IMMUNOGLOBULIN G
     Dosage: 6 GRAM, QW
     Route: 058
     Dates: start: 20200831
  3. LASIX [Concomitant]
     Active Substance: FUROSEMIDE
  4. PRAZOSIN HYDROCHLORIDE [Concomitant]
     Active Substance: PRAZOSIN HYDROCHLORIDE
     Dosage: 1 MILLIGRAM
  5. ASPIRIN [Concomitant]
     Active Substance: ASPIRIN
     Dosage: 81 MILLIGRAM
  6. VITAMIN D2 [Concomitant]
     Active Substance: ERGOCALCIFEROL
  7. CLINDAMYCIN HYDROCHLORIDE [Concomitant]
     Active Substance: CLINDAMYCIN HYDROCHLORIDE
  8. LIDOCAINE [Concomitant]
     Active Substance: LIDOCAINE
  9. MOBIC [Concomitant]
     Active Substance: MELOXICAM
  10. DEXILANT [Concomitant]
     Active Substance: DEXLANSOPRAZOLE
  11. ABILIFY [Concomitant]
     Active Substance: ARIPIPRAZOLE
  12. BELSOMRA [Concomitant]
     Active Substance: SUVOREXANT
  13. BUSPIRONE HCL [Concomitant]
     Active Substance: BUSPIRONE HYDROCHLORIDE
  14. FENTANYL [Concomitant]
     Active Substance: FENTANYL
  15. INDERAL LA [Concomitant]
     Active Substance: PROPRANOLOL HYDROCHLORIDE
  16. KLONOPIN [Concomitant]
     Active Substance: CLONAZEPAM
  17. NATURE-THROID [Concomitant]
     Active Substance: THYROID, PORCINE
  18. NORCO [Concomitant]
     Active Substance: ACETAMINOPHEN\HYDROCODONE BITARTRATE
  19. PRILOSEC [Concomitant]
     Active Substance: OMEPRAZOLE MAGNESIUM
  20. PROAIR HFA [Concomitant]
     Active Substance: ALBUTEROL SULFATE
  21. VITAMIN D3 [Concomitant]
     Active Substance: CHOLECALCIFEROL
  22. ZANAFLEX [Concomitant]
     Active Substance: TIZANIDINE HYDROCHLORIDE
  23. ZANTAC [Concomitant]
     Active Substance: RANITIDINE HYDROCHLORIDE
  24. ZOLOFT [Concomitant]
     Active Substance: SERTRALINE HYDROCHLORIDE

REACTIONS (5)
  - Infusion site pain [Recovered/Resolved]
  - Post-acute COVID-19 syndrome [Recovered/Resolved]
  - Asthma [Recovered/Resolved]
  - Dyspnoea [Recovered/Resolved]
  - Injection site rash [Recovered/Resolved]
